FAERS Safety Report 5693034-0 (Version None)
Quarter: 2008Q2

REPORT INFORMATION
  Report Type: 
  Country: None (occurrence: None)
  Receive Date: 20080402
  Receipt Date: 20080402
  Transmission Date: 20081010
  Serious: No
  Sender: FDA-Public Use
  Company Number: None

PATIENT
  Age: 30 Year
  Sex: Female
  Weight: 125.1928 kg

DRUGS (1)
  1. ATENOLOL [Suspect]
     Indication: HYPERTENSION
     Dosage: 50 MG DAILY PO  3 1/2 MONTHS
     Route: 048
     Dates: start: 20071204, end: 20080314

REACTIONS (1)
  - TYPE 2 DIABETES MELLITUS [None]
